FAERS Safety Report 6384716 (Version 5)
Quarter: 2013Q1

REPORT INFORMATION
  Report Type: Report from Study
  Country: KR (occurrence: KR)
  Receive Date: 20070816
  Receipt Date: 20130213
  Transmission Date: 20140127
  Serious: Yes (Hospitalization)
  Sender: FDA-Public Use
  Company Number: KR-SANOFI-AVENTIS-200717208GDDC

PATIENT
  Age: 48 Year
  Sex: Female
  Weight: 68.2 kg

DRUGS (11)
  1. DOCETAXEL [Suspect]
     Indication: BREAST CANCER
     Dosage: DOSE UNIT: 75 MG/M**2
     Route: 042
     Dates: start: 20070503, end: 20070503
  2. CIPROFLOXACIN [Concomitant]
     Route: 048
  3. CONOFEN [Concomitant]
     Dosage: DOSE AS USED: 2 C
     Route: 048
  4. DEXAMETHASONE [Concomitant]
     Route: 048
  5. DEXAMETHASONE [Concomitant]
     Route: 042
  6. RANITIDINE [Concomitant]
     Route: 048
  7. RANITIDINE [Concomitant]
     Route: 042
  8. TROPISETRON [Concomitant]
     Route: 042
  9. TROPISETRON [Concomitant]
     Route: 048
  10. PHENIRAMINE MALEATE [Concomitant]
     Route: 042
  11. MAGNESIUM OXIDE [Concomitant]
     Route: 048

REACTIONS (1)
  - Glucose tolerance impaired [Recovered/Resolved]
